FAERS Safety Report 10429387 (Version 1)
Quarter: 2014Q3

REPORT INFORMATION
  Report Type: Spontaneous
  Country: CN (occurrence: CN)
  Receive Date: 20140904
  Receipt Date: 20140904
  Transmission Date: 20150326
  Serious: Yes (Other)
  Sender: FDA-Public Use
  Company Number: CN-ROCHE-1457777

PATIENT
  Age: 36 Year
  Sex: Female

DRUGS (2)
  1. OXYBUPROCAINE [Concomitant]
     Active Substance: BENOXINATE
     Indication: LOCAL ANAESTHESIA
  2. RANIBIZUMAB [Suspect]
     Active Substance: RANIBIZUMAB
     Indication: CHOROIDAL NEOVASCULARISATION
     Route: 050
     Dates: start: 20100627

REACTIONS (2)
  - Retinal detachment [Unknown]
  - Retinoschisis [Unknown]
